FAERS Safety Report 6467489-8 (Version None)
Quarter: 2009Q4

REPORT INFORMATION
  Report Type: 
  Country: None (occurrence: None)
  Receive Date: 20091202
  Receipt Date: 20091126
  Transmission Date: 20100525
  Serious: Yes (Hospitalization)
  Sender: FDA-Public Use
  Company Number: IT-NOVOPROD-301176

PATIENT
  Sex: Male

DRUGS (6)
  1. NOVOLOG [Suspect]
     Indication: TYPE 1 DIABETES MELLITUS
     Dosage: 48-51 U
     Route: 058
  2. NOVOLOG [Suspect]
     Dosage: 10+20+18
     Route: 058
  3. NOVOMIX 30 FLEXPEN [Suspect]
     Indication: TYPE 1 DIABETES MELLITUS
     Dosage: 15-18 U
     Dates: end: 20090115
  4. NOVOMIX 70 FLEXPEN [Suspect]
     Indication: TYPE 1 DIABETES MELLITUS
     Dosage: 15-18 U
  5. PROTAMINE SULFATE [Concomitant]
  6. LANTUS [Concomitant]

REACTIONS (3)
  - CARDIAC FAILURE [None]
  - HYPOGLYCAEMIC COMA [None]
  - HYPOGLYCAEMIC SEIZURE [None]
